FAERS Safety Report 4346185-7 (Version None)
Quarter: 2004Q1

REPORT INFORMATION
  Report Type: 
  Country: None (occurrence: None)
  Receive Date: 20040325
  Receipt Date: 20031209
  Transmission Date: 20041129
  Serious: No
  Sender: FDA-Public Use
  Company Number: USA031254395

PATIENT
  Age: 69 Year
  Sex: Female

DRUGS (3)
  1. FORTEO [Suspect]
     Indication: OSTEOPOROSIS
     Dosage: 20 UG/DAY
     Dates: start: 20030915
  2. SYNTHROID [Concomitant]
  3. PREMARIN [Concomitant]

REACTIONS (3)
  - BUTTOCK PAIN [None]
  - MUSCLE CRAMP [None]
  - PAIN IN EXTREMITY [None]
